FAERS Safety Report 8969308 (Version 1)
Quarter: 2012Q4

REPORT INFORMATION
  Report Type: 
  Country: PL (occurrence: PL)
  Receive Date: 20121218
  Receipt Date: 20121218
  Transmission Date: 20130627
  Serious: Yes (Other)
  Sender: FDA-Public Use
  Company Number: PL-009507513-1212POL004916

PATIENT
  Sex: Female

DRUGS (1)
  1. PROPECIA [Suspect]
     Dosage: UNK

REACTIONS (3)
  - Abortion spontaneous [Unknown]
  - Exposure via father [Recovered/Resolved]
  - Stress [Not Recovered/Not Resolved]
